FAERS Safety Report 5861372-4 (Version None)
Quarter: 2008Q3

REPORT INFORMATION
  Report Type: 
  Country: None (occurrence: None)
  Receive Date: 20080827
  Receipt Date: 20080430
  Transmission Date: 20090109
  Serious: No
  Sender: FDA-Public Use
  Company Number: US-ABBOTT-08P-163-0449633-00

PATIENT
  Sex: Male
  Weight: 108.96 kg

DRUGS (4)
  1. COATED PDS [Suspect]
     Indication: BLOOD TRIGLYCERIDES INCREASED
     Route: 048
     Dates: start: 20080422, end: 20080426
  2. BACLOFEN [Concomitant]
     Indication: MULTIPLE SCLEROSIS
     Route: 048
  3. GEMFIBROZIL [Concomitant]
     Indication: BLOOD TRIGLYCERIDES INCREASED
     Route: 048
     Dates: start: 20080401
  4. POLYETHELYN GLYCOL [Concomitant]
     Indication: CONSTIPATION
     Route: 048

REACTIONS (3)
  - ERYTHEMA [None]
  - HEADACHE [None]
  - TREMOR [None]
